FAERS Safety Report 6613759-X (Version None)
Quarter: 2010Q1

REPORT INFORMATION
  Report Type: 
  Country: None (occurrence: None)
  Receive Date: 20100225
  Receipt Date: 20100215
  Transmission Date: 20100710
  Serious: Yes (Other)
  Sender: FDA-Public Use
  Company Number: A-CH2009-25302

PATIENT
  Age: 4 Year
  Sex: Male
  Weight: 14 kg

DRUGS (2)
  1. ZAVESCA [Suspect]
     Indication: NIEMANN-PICK DISEASE
     Dosage: 100 MG, BID, ORAL
     Route: 048
     Dates: start: 20090424, end: 20090511
  2. ZAVESCA [Suspect]
     Indication: NIEMANN-PICK DISEASE
     Dosage: 100 MG, BID, ORAL
     Route: 048
     Dates: start: 20100201, end: 20100208

REACTIONS (10)
  - APHASIA [None]
  - ASTHENIA [None]
  - DYSPHAGIA [None]
  - FATIGUE [None]
  - GASTROSTOMY [None]
  - GENERAL PHYSICAL HEALTH DETERIORATION [None]
  - IMMOBILE [None]
  - MALAISE [None]
  - MOBILITY DECREASED [None]
  - SOMNOLENCE [None]
